FAERS Safety Report 8543436-X (Version None)
Quarter: 2012Q3

REPORT INFORMATION
  Report Type: 
  Country: None (occurrence: None)
  Receive Date: 20120719
  Receipt Date: 20120719
  Transmission Date: 20120928
  Serious: Yes (Life-Threatening, Disabling)
  Sender: FDA-Public Use
  Company Number: None

PATIENT
  Sex: Female
  Weight: 56.6996 kg

DRUGS (5)
  1. PEGASYS [Suspect]
     Indication: HEPATITIS C
     Dates: start: 20110903, end: 20120513
  2. PEGASYS [Suspect]
     Indication: DISEASE RECURRENCE
     Dates: start: 20110903, end: 20120513
  3. INCIVEK [Suspect]
     Dosage: 2 TABLETS 7-9 HRS APART
  4. VICTRELIS [Suspect]
     Dosage: 12 A DAY
  5. RIBAVIRIN [Suspect]
     Dosage: (6) A DAY

REACTIONS (1)
  - ADVERSE EVENT [None]
